FAERS Safety Report 26120932 (Version 1)
Quarter: 2025Q4

REPORT INFORMATION
  Report Type: Report from Study
  Country: US (occurrence: US)
  Receive Date: 20251204
  Receipt Date: 20251204
  Transmission Date: 20260117
  Serious: Yes (Life-Threatening, Hospitalization)
  Sender: JOHNSON AND JOHNSON
  Company Number: US-JNJFOC-20251148164

PATIENT
  Age: 13 Year
  Sex: Female
  Weight: 38.2 kg

DRUGS (2)
  1. MACITENTAN\TADALAFIL [Suspect]
     Active Substance: MACITENTAN\TADALAFIL
     Indication: Pulmonary arterial hypertension
     Dosage: 20/40 MG
     Route: 048
     Dates: start: 202510, end: 202510
  2. REMODULIN [Concomitant]
     Active Substance: TREPROSTINIL
     Indication: Pulmonary arterial hypertension
     Route: 042
     Dates: start: 2018, end: 202510

REACTIONS (4)
  - Lung transplant [Not Recovered/Not Resolved]
  - Dyspnoea [Unknown]
  - Oxygen consumption increased [Unknown]
  - Off label use [Unknown]

NARRATIVE: CASE EVENT DATE: 20251020
